FAERS Safety Report 12153477 (Version 2)
Quarter: 2017Q1

REPORT INFORMATION
  Report Type: Spontaneous
  Country: US (occurrence: US)
  Receive Date: 20160306
  Receipt Date: 20170208
  Transmission Date: 20170428
  Serious: Yes (Other)
  Sender: FDA-Public Use
  Company Number: US-ELI_LILLY_AND_COMPANY-US201602009339

PATIENT
  Sex: Female
  Weight: 76 kg

DRUGS (12)
  1. CYMBALTA [Suspect]
     Active Substance: DULOXETINE HYDROCHLORIDE
     Indication: DEPRESSION
     Dosage: 60 MG, QD
     Route: 048
     Dates: start: 20150612
  2. ZOLPIDEM TARTRATE. [Concomitant]
     Active Substance: ZOLPIDEM TARTRATE
     Dosage: 5 MG, QD
     Route: 048
  3. ALPRAZOLAM. [Concomitant]
     Active Substance: ALPRAZOLAM
     Indication: ANXIETY
     Dosage: 0.25 MG, TID
  4. CHILDRENS CHEWABLE VITAMINS [Concomitant]
     Dosage: 2 DF, QD
     Route: 048
  5. CYMBALTA [Suspect]
     Active Substance: DULOXETINE HYDROCHLORIDE
     Indication: PAIN
     Dosage: UNK, UNKNOWN
     Route: 048
  6. OMEPRAZOLE. [Concomitant]
     Active Substance: OMEPRAZOLE
     Dosage: 40 MG, QD
     Route: 048
  7. VITAMIN D3 [Concomitant]
     Active Substance: CHOLECALCIFEROL
     Dosage: 4000 U, QD
     Route: 048
  8. VITAMIN B12 [Concomitant]
     Active Substance: CYANOCOBALAMIN
     Dosage: .05 MG, QD
     Route: 048
  9. CALCIUM CITRATE [Concomitant]
     Active Substance: CALCIUM CITRATE
     Dosage: 1000 MG, QD
     Route: 048
  10. FLUOXETINE HYDROCHLORIDE. [Concomitant]
     Active Substance: FLUOXETINE HYDROCHLORIDE
     Dosage: 20 MG, QD
     Route: 048
  11. BIOTIN [Concomitant]
     Active Substance: BIOTIN
     Dosage: 5 MG, UNK
     Route: 048
  12. TOPAMAX [Concomitant]
     Active Substance: TOPIRAMATE
     Dosage: 50 MG, BID
     Route: 048

REACTIONS (25)
  - Withdrawal syndrome [Unknown]
  - Nausea [Unknown]
  - Irritability [Unknown]
  - Hyperhidrosis [Unknown]
  - Headache [Unknown]
  - Hypoaesthesia [Unknown]
  - Influenza like illness [Unknown]
  - Paraesthesia [Unknown]
  - Diarrhoea [Unknown]
  - Suicidal ideation [Unknown]
  - Aggression [Unknown]
  - Memory impairment [Unknown]
  - Agitation [Unknown]
  - Dysphoria [Unknown]
  - Migraine [Unknown]
  - Sensory disturbance [Unknown]
  - Sleep disorder [Unknown]
  - Fatigue [Unknown]
  - Disturbance in attention [Unknown]
  - Confusional state [Unknown]
  - Nightmare [Unknown]
  - Dizziness [Unknown]
  - Vomiting [Unknown]
  - Hypersomnia [Unknown]
  - Hallucination [Unknown]
